FAERS Safety Report 22284750 (Version 1)
Quarter: 2023Q2

REPORT INFORMATION
  Report Type: Spontaneous
  Country: US (occurrence: US)
  Receive Date: 20230504
  Receipt Date: 20230504
  Transmission Date: 20230721
  Serious: Yes (Hospitalization, Other)
  Sender: FDA-Public Use
  Company Number: US-BRISTOL-MYERS SQUIBB COMPANY-2023-061297

PATIENT
  Age: 52 Year
  Sex: Female

DRUGS (8)
  1. SPRYCEL [Suspect]
     Active Substance: DASATINIB
     Indication: Philadelphia positive chronic myeloid leukaemia
     Dosage: DOSE : UNAVAILABLE;     FREQ : DAILY
     Route: 048
     Dates: end: 202211
  2. SPRYCEL [Suspect]
     Active Substance: DASATINIB
     Indication: Blast crisis in myelogenous leukaemia
  3. ACYCLOVIR [Concomitant]
     Active Substance: ACYCLOVIR
     Indication: Product used for unknown indication
  4. TRAZODONE HYDROCHLORIDE [Concomitant]
     Active Substance: TRAZODONE HYDROCHLORIDE
     Indication: Product used for unknown indication
  5. FOLIC ACID [Concomitant]
     Active Substance: FOLIC ACID
     Indication: Product used for unknown indication
  6. HALOPERIDOL [Concomitant]
     Active Substance: HALOPERIDOL
     Indication: Product used for unknown indication
  7. HEARTBURN RELIEF [CIMETIDINE] [Concomitant]
     Indication: Product used for unknown indication
  8. ZOFRAN [Concomitant]
     Active Substance: ONDANSETRON HYDROCHLORIDE
     Indication: Product used for unknown indication

REACTIONS (1)
  - Full blood count decreased [Unknown]
